FAERS Safety Report 5504854-7 (Version None)
Quarter: 2007Q4

REPORT INFORMATION
  Report Type: 
  Country: None (occurrence: None)
  Receive Date: 20071102
  Receipt Date: 20071023
  Transmission Date: 20080405
  Serious: Yes (Other)
  Sender: FDA-Public Use
  Company Number: PHHO2007BR17866

PATIENT
  Age: 58 Year
  Sex: Female

DRUGS (4)
  1. DIOVAN HCT [Suspect]
     Indication: HYPERTENSION
     Dosage: 160 / 12.5 MG
     Route: 048
     Dates: start: 20071019
  2. GALVUS [Suspect]
     Indication: DIABETES PROPHYLAXIS
     Dosage: 100 MG, QD
     Route: 048
     Dates: start: 20071019
  3. MODURETIC 5-50 [Concomitant]
     Indication: DIURETIC THERAPY
  4. PURAN T4 [Concomitant]
     Indication: HYPOTHYROIDISM

REACTIONS (8)
  - AREFLEXIA [None]
  - ARTHRALGIA [None]
  - ARTHROPATHY [None]
  - PARAESTHESIA [None]
  - PRURITUS [None]
  - SOMNOLENCE [None]
  - SPINAL DISORDER [None]
  - URTICARIA [None]
